FAERS Safety Report 20952446 (Version 2)
Quarter: 2022Q2

REPORT INFORMATION
  Report Type: Other
  Country: US (occurrence: None)
  Receive Date: 20220613
  Receipt Date: 20220622
  Transmission Date: 20220721
  Serious: No
  Sender: FDA-Public Use
  Company Number: US-ROCHE-2558926

PATIENT
  Age: 55 Year
  Sex: Female
  Weight: 52.210 kg

DRUGS (8)
  1. OCREVUS [Suspect]
     Active Substance: OCRELIZUMAB
     Indication: Relapsing-remitting multiple sclerosis
     Route: 042
     Dates: start: 201909, end: 201909
  2. OCREVUS [Suspect]
     Active Substance: OCRELIZUMAB
     Indication: Progressive relapsing multiple sclerosis
     Route: 042
     Dates: start: 20190923
  3. OCREVUS [Suspect]
     Active Substance: OCRELIZUMAB
     Route: 042
     Dates: start: 20191007
  4. TYSABRI [Concomitant]
     Active Substance: NATALIZUMAB
  5. TYLENOL [Concomitant]
     Active Substance: ACETAMINOPHEN
     Indication: Migraine
  6. IMITREX [Concomitant]
     Active Substance: SUMATRIPTAN SUCCINATE
  7. ADVIL [Concomitant]
     Active Substance: IBUPROFEN
  8. PFIZER-BIONTECH COVID-19 VACCINE [Concomitant]
     Active Substance: TOZINAMERAN
     Dosage: DATE OF VACCINATIONS: 05/APR/2021, 27/APR/2021, 19/DEC/2021, 18/APR/2022

REACTIONS (8)
  - Cough [Not Recovered/Not Resolved]
  - Throat tightness [Recovered/Resolved]
  - B-lymphocyte count decreased [Unknown]
  - Immunosuppression [Unknown]
  - Dyspnoea [Not Recovered/Not Resolved]
  - Illness [Unknown]
  - Dysphagia [Unknown]
  - COVID-19 [Recovered/Resolved]

NARRATIVE: CASE EVENT DATE: 20190901
